FAERS Safety Report 6192939-4 (Version None)
Quarter: 2009Q2

REPORT INFORMATION
  Report Type: 
  Country: None (occurrence: None)
  Receive Date: 20090518
  Receipt Date: 20090513
  Transmission Date: 20091009
  Serious: Yes (Other)
  Sender: FDA-Public Use
  Company Number: US-ALLERGAN-0906689US

PATIENT
  Age: 69 Year
  Sex: Male

DRUGS (4)
  1. BOTOX [Suspect]
     Indication: TENDON DISORDER
     Dosage: 400 UNITS, SINGLE
     Route: 030
  2. BOTOX [Suspect]
     Indication: MUSCLE SPASTICITY
  3. VALPROIC ACID [Concomitant]
     Indication: CONVULSION
  4. VALPROIC ACID [Concomitant]
     Indication: CONVULSION PROPHYLAXIS

REACTIONS (1)
  - GRAND MAL CONVULSION [None]
